FAERS Safety Report 5171259-0 (Version None)
Quarter: 2006Q4

REPORT INFORMATION
  Report Type: 
  Country: None (occurrence: None)
  Receive Date: 20061213
  Receipt Date: 20050815
  Transmission Date: 20070319
  Serious: Yes (Other)
  Sender: FDA-Public Use
  Company Number: US-AMGEN-US146553

PATIENT
  Sex: Male

DRUGS (8)
  1. ENBREL [Suspect]
     Indication: PSORIASIS
     Dates: start: 20050111, end: 20050714
  2. ENBREL [Suspect]
     Indication: PSORIATIC ARTHROPATHY
  3. PROVENTIL [Concomitant]
  4. DOVONEX [Concomitant]
  5. KENALOG [Concomitant]
     Route: 061
  6. TOPROL-XL [Concomitant]
  7. PRAVACHOL [Concomitant]
  8. DIOVAN HCT [Concomitant]

REACTIONS (1)
  - KAPOSI'S SARCOMA [None]
